FAERS Safety Report 4615739-2 (Version None)
Quarter: 2005Q1

REPORT INFORMATION
  Report Type: 
  Country: None (occurrence: None)
  Receive Date: 20050317
  Receipt Date: 20050302
  Transmission Date: 20050727
  Serious: Yes (Other)
  Sender: FDA-Public Use
  Company Number: 2005-0008111

PATIENT
  Sex: Male

DRUGS (4)
  1. VIREAD [Suspect]
     Indication: HEPATITIS B
     Dosage: 300 MG, ORAL
     Route: 048
  2. VIREAD [Suspect]
     Indication: HIV INFECTION
     Dosage: 300 MG, ORAL
     Route: 048
  3. EMTRIVA [Suspect]
     Indication: HIV INFECTION
     Dosage: 200 MG, ORAL
     Route: 048
  4. KALETRA [Concomitant]

REACTIONS (1)
  - MULTIPLE FRACTURES [None]
